FAERS Safety Report 8374176-8 (Version None)
Quarter: 2012Q2

REPORT INFORMATION
  Report Type: 
  Country: None (occurrence: None)
  Receive Date: 20120521
  Receipt Date: 20120511
  Transmission Date: 20120825
  Serious: Yes (Life-Threatening, Hospitalization, Disabling)
  Sender: FDA-Public Use
  Company Number: DK-GLAXOSMITHKLINE-B0800589A

PATIENT
  Sex: Female
  Weight: 82 kg

DRUGS (5)
  1. PAROXETINE HYDROCHLORIDE [Suspect]
     Indication: ANXIETY
     Route: 065
     Dates: start: 20020701
  2. DICLOFENAC SODIUM [Suspect]
     Indication: BACK PAIN
     Route: 065
     Dates: start: 20040429, end: 20040429
  3. DESOGESTREL AND ETHINYL ESTRADIOL [Suspect]
     Indication: CONTRACEPTION
     Route: 048
     Dates: start: 20040425, end: 20040527
  4. TRAMADOL HYDROCHLORIDE [Suspect]
     Indication: PRODUCT USED FOR UNKNOWN INDICATION
     Route: 065
  5. AKARIN [Concomitant]
     Indication: DEPRESSION
     Dosage: 40MG PER DAY
     Route: 048

REACTIONS (11)
  - WEIGHT INCREASED [None]
  - RESTLESSNESS [None]
  - CHEST PAIN [None]
  - SEROTONIN SYNDROME [None]
  - BACK PAIN [None]
  - CARDIAC ARREST [None]
  - PALPITATIONS [None]
  - PARAESTHESIA [None]
  - HEADACHE [None]
  - ACUTE MYOCARDIAL INFARCTION [None]
  - HYPERHIDROSIS [None]
